FAERS Safety Report 23151278 (Version 1)
Quarter: 2023Q4

REPORT INFORMATION
  Report Type: Spontaneous
  Country: FR (occurrence: None)
  Receive Date: 20231107
  Receipt Date: 20231107
  Transmission Date: 20240110
  Serious: Yes (Hospitalization)
  Sender: FDA-Public Use
  Company Number: 2023A250454

PATIENT
  Age: 66 Year
  Sex: Male
  Weight: 63 kg

DRUGS (3)
  1. IMFINZI [Suspect]
     Active Substance: DURVALUMAB
     Indication: Squamous cell carcinoma
     Dosage: 15001500.0MG EVERY CYCLE
     Route: 040
     Dates: start: 20230804, end: 20230804
  2. CISPLATIN [Concomitant]
     Active Substance: CISPLATIN
     Indication: Squamous cell carcinoma
     Dosage: 4.0{CYCLICAL} ONCE/SINGLE ADMINISTRATION
     Route: 040
     Dates: start: 202304, end: 20230630
  3. NAVELBINE [Concomitant]
     Active Substance: VINORELBINE TARTRATE
     Indication: Squamous cell carcinoma
     Dosage: 4.0{CYCLICAL} ONCE/SINGLE ADMINISTRATION
     Route: 040
     Dates: start: 202304, end: 20230630

REACTIONS (1)
  - Lung disorder [Recovering/Resolving]

NARRATIVE: CASE EVENT DATE: 20230828
